FAERS Safety Report 19776160 (Version 1)
Quarter: 2021Q3

REPORT INFORMATION
  Report Type: Report from Study
  Country: None (occurrence: CA)
  Receive Date: 20210902
  Receipt Date: 20210902
  Transmission Date: 20211014
  Serious: Yes (Other)
  Sender: FDA-Public Use
  Company Number: CA-ABBVIE-20K-028-3525584-00

PATIENT
  Sex: Female

DRUGS (1)
  1. HUMIRA [Suspect]
     Active Substance: ADALIMUMAB
     Indication: CROHN^S DISEASE
     Route: 058
     Dates: start: 20160802

REACTIONS (8)
  - Injection site hyperaesthesia [Not Recovered/Not Resolved]
  - Abscess [Not Recovered/Not Resolved]
  - Adverse food reaction [Unknown]
  - Injection site bruising [Unknown]
  - Diarrhoea [Not Recovered/Not Resolved]
  - Anal fistula [Not Recovered/Not Resolved]
  - Abdominal discomfort [Recovering/Resolving]
  - Injection site haemorrhage [Unknown]
